FAERS Safety Report 5135926-7 (Version None)
Quarter: 2006Q4

REPORT INFORMATION
  Report Type: 
  Country: None (occurrence: None)
  Receive Date: 20061020
  Receipt Date: 20061009
  Transmission Date: 20070319
  Serious: Yes (Other)
  Sender: FDA-Public Use
  Company Number: 2006AP000812

PATIENT
  Age: 72 Year
  Sex: Female

DRUGS (12)
  1. PAROXETINE HYDROCHLORIDE [Suspect]
     Indication: DEPRESSION
     Dosage: 20 MG; PO
     Route: 048
  2. MUPIROCIN                      (MUPIROCIN) [Concomitant]
  3. MUPIROCIN CALCIUM                                (MUPIROCIN CALCIUM) [Concomitant]
  4. IBUPROFEN [Concomitant]
  5. CITALOPRAM HYDROBROMIDE [Concomitant]
  6. CETOMACROGOL 1000                             (CETOMACROGOL 1000) [Concomitant]
  7. CODEINE PHOSPHATE                (CODEINE PHOSPHATE) [Concomitant]
  8. CODEINE PHOSPHATE HEMIHYDRATE [Concomitant]
  9. ACETAMINOPHEN [Concomitant]
  10. HYDROCORTISONE [Concomitant]
  11. HYDROCORTISONE ACETATE [Concomitant]
  12. MICONAZOLE NITRATE [Concomitant]

REACTIONS (2)
  - DYSPHAGIA [None]
  - TARDIVE DYSKINESIA [None]
